FAERS Safety Report 16751939 (Version 5)
Quarter: 2020Q2

REPORT INFORMATION
  Report Type: Report from Study
  Country: FR (occurrence: FR)
  Receive Date: 20190828
  Receipt Date: 20200526
  Transmission Date: 20200713
  Serious: Yes (Hospitalization, Other)
  Sender: FDA-Public Use
  Company Number: PHHY2019FR099582

PATIENT
  Age: 66 Year
  Sex: Male
  Weight: 88.8 kg

DRUGS (32)
  1. ADOPORT [Suspect]
     Active Substance: TACROLIMUS
     Dosage: 12.5 MG, UNK
     Route: 048
     Dates: start: 20190416, end: 20190417
  2. ADOPORT [Suspect]
     Active Substance: TACROLIMUS
     Dosage: 15 MG, UNK
     Route: 048
     Dates: start: 20190507, end: 20190513
  3. MIRCERA [Concomitant]
     Active Substance: METHOXY POLYETHYLENE GLYCOL-EPOETIN BETA
     Indication: PRODUCT USED FOR UNKNOWN INDICATION
     Dosage: UNK
     Route: 065
     Dates: start: 20190406
  4. ADOPORT [Suspect]
     Active Substance: TACROLIMUS
     Dosage: 14.5 MG, UNK
     Route: 048
     Dates: start: 20190506, end: 20190507
  5. ADOPORT [Suspect]
     Active Substance: TACROLIMUS
     Dosage: 12.5 MG, UNK
     Route: 048
     Dates: start: 20190606, end: 20190607
  6. ADOPORT [Suspect]
     Active Substance: TACROLIMUS
     Dosage: 11.5 MG, UNK
     Route: 048
     Dates: start: 20190711, end: 20190711
  7. ROVALCYTE [Concomitant]
     Active Substance: VALGANCICLOVIR HYDROCHLORIDE
     Indication: PRODUCT USED FOR UNKNOWN INDICATION
     Dosage: UNK
     Route: 065
     Dates: start: 20190414
  8. GALVUS [Concomitant]
     Active Substance: VILDAGLIPTIN
     Indication: PRODUCT USED FOR UNKNOWN INDICATION
     Dosage: UNK
     Route: 065
     Dates: start: 20190412
  9. ADOPORT [Suspect]
     Active Substance: TACROLIMUS
     Dosage: 14 MG, UNK
     Route: 048
     Dates: start: 20190406, end: 20190411
  10. ADOPORT [Suspect]
     Active Substance: TACROLIMUS
     Dosage: 16 MG, UNK
     Route: 048
     Dates: start: 20190426, end: 20190503
  11. ADOPORT [Suspect]
     Active Substance: TACROLIMUS
     Dosage: 14 MG, UNK
     Route: 048
     Dates: start: 20190504, end: 20190506
  12. ADOPORT [Suspect]
     Active Substance: TACROLIMUS
     Dosage: 14.5 MG, UNK
     Route: 048
     Dates: start: 20190513, end: 20190514
  13. ADOPORT [Suspect]
     Active Substance: TACROLIMUS
     Dosage: 10.5 MG, UNK
     Route: 048
     Dates: start: 20190711, end: 20190712
  14. BACTRIM [Concomitant]
     Active Substance: SULFAMETHOXAZOLE\TRIMETHOPRIM
     Indication: PRODUCT USED FOR UNKNOWN INDICATION
     Dosage: UNK
     Route: 065
     Dates: start: 20190412
  15. ADOPORT [Suspect]
     Active Substance: TACROLIMUS
     Dosage: 12 MG, UNK
     Route: 048
     Dates: start: 20190412, end: 20190416
  16. ADOPORT [Suspect]
     Active Substance: TACROLIMUS
     Dosage: 13 MG, UNK
     Route: 048
     Dates: start: 20190417, end: 20190419
  17. ADOPORT [Suspect]
     Active Substance: TACROLIMUS
     Dosage: 15.5 MG, UNK
     Route: 048
     Dates: start: 20190425, end: 20190426
  18. ADOPORT [Suspect]
     Active Substance: TACROLIMUS
     Dosage: 11.5 MG, UNK
     Route: 048
     Dates: start: 20190611, end: 20190612
  19. ADOPORT [Suspect]
     Active Substance: TACROLIMUS
     Dosage: 10 MG, UNK
     Route: 048
     Dates: start: 20190712
  20. PHOSPHONEUROS [Concomitant]
     Active Substance: CALCIUM PHOSPHATE, DIBASIC, ANHYDROUS\MAGNESIUM GLYCEROPHOSPHATE\PHOSPHORIC ACID\SODIUM PHOSPHATE, DIBASIC
     Indication: PRODUCT USED FOR UNKNOWN INDICATION
     Dosage: UNK
     Route: 065
     Dates: start: 20190415
  21. CELLCEPT [Concomitant]
     Active Substance: MYCOPHENOLATE MOFETIL\MYCOPHENOLATE MOFETIL HYDROCHLORIDE
     Indication: PRODUCT USED FOR UNKNOWN INDICATION
     Dosage: UNK
     Route: 065
     Dates: start: 20190404
  22. ADOPORT [Suspect]
     Active Substance: TACROLIMUS
     Dosage: 15 MG, UNK
     Route: 048
     Dates: start: 20190420, end: 20190425
  23. ADOPORT [Suspect]
     Active Substance: TACROLIMUS
     Dosage: 13.5 MG, UNK
     Route: 048
     Dates: start: 20190601, end: 20190602
  24. ADOPORT [Suspect]
     Active Substance: TACROLIMUS
     Dosage: 13 MG, UNK
     Route: 048
     Dates: start: 20190602
  25. ADOPORT [Suspect]
     Active Substance: TACROLIMUS
     Dosage: 12 MG, UNK
     Route: 048
     Dates: start: 20190607, end: 20190611
  26. ADOPORT [Suspect]
     Active Substance: TACROLIMUS
     Dosage: 11 MG, UNK
     Route: 048
     Dates: start: 20190612, end: 20190711
  27. ADOPORT [Suspect]
     Active Substance: TACROLIMUS
     Dosage: 14 MG, UNK
     Route: 048
     Dates: start: 20190419, end: 20190420
  28. ADOPORT [Suspect]
     Active Substance: TACROLIMUS
     Dosage: 13 MG, UNK
     Route: 048
     Dates: start: 20190411, end: 20190412
  29. ADOPORT [Suspect]
     Active Substance: TACROLIMUS
     Dosage: 14 MG, UNK
     Route: 048
     Dates: start: 20190514, end: 20190601
  30. SODIUM BICARBONATE. [Concomitant]
     Active Substance: SODIUM BICARBONATE
     Indication: PRODUCT USED FOR UNKNOWN INDICATION
     Dosage: UNK
     Route: 065
     Dates: start: 20190415
  31. ADOPORT [Suspect]
     Active Substance: TACROLIMUS
     Indication: RENAL TRANSPLANT
     Dosage: 7 MG, UNK
     Route: 048
     Dates: start: 20190405, end: 20190406
  32. ADOPORT [Suspect]
     Active Substance: TACROLIMUS
     Dosage: 15 MG, UNK
     Route: 048
     Dates: start: 20190503, end: 20190504

REACTIONS (14)
  - Leukopenia [Not Recovered/Not Resolved]
  - Hypophosphataemia [Not Recovered/Not Resolved]
  - Lymphopenia [Not Recovered/Not Resolved]
  - Diarrhoea [Recovered/Resolved]
  - Drug level increased [Recovered/Resolved]
  - Hypokalaemia [Not Recovered/Not Resolved]
  - Anastomotic stenosis [Not Recovered/Not Resolved]
  - Urinary tract infection enterococcal [Recovered/Resolved]
  - Bacterial prostatitis [Recovered/Resolved]
  - Thrombocytopenia [Recovered/Resolved]
  - Blood bicarbonate decreased [Not Recovered/Not Resolved]
  - Diarrhoea [Not Recovered/Not Resolved]
  - Hypokalaemia [Recovered/Resolved]
  - Cytomegalovirus infection [Recovered/Resolved]

NARRATIVE: CASE EVENT DATE: 20190410
